FAERS Safety Report 15629267 (Version 2)
Quarter: 2019Q1

REPORT INFORMATION
  Report Type: Report from Study
  Country: None (occurrence: CA)
  Receive Date: 20181116
  Receipt Date: 20190321
  Transmission Date: 20190417
  Serious: Yes (Other)
  Sender: FDA-Public Use
  Company Number: CA-ABBVIE-18K-028-2555596-00

PATIENT
  Sex: Female

DRUGS (1)
  1. HUMIRA [Suspect]
     Active Substance: ADALIMUMAB
     Indication: CROHN^S DISEASE
     Route: 058
     Dates: start: 20071218

REACTIONS (7)
  - Fistula discharge [Not Recovered/Not Resolved]
  - Procedural pain [Not Recovered/Not Resolved]
  - Anorectal disorder [Not Recovered/Not Resolved]
  - Anal abscess [Not Recovered/Not Resolved]
  - Nasal dryness [Not Recovered/Not Resolved]
  - Eczema [Not Recovered/Not Resolved]
  - Diarrhoea [Not Recovered/Not Resolved]
